FAERS Safety Report 11422893 (Version 1)
Quarter: 2015Q3

REPORT INFORMATION
  Report Type: Spontaneous
  Country: ES (occurrence: ES)
  Receive Date: 20150827
  Receipt Date: 20150827
  Transmission Date: 20151125
  Serious: Yes (Hospitalization)
  Sender: FDA-Public Use
  Company Number: ES-009507513-1508ESP010336

PATIENT
  Age: 64 Year
  Sex: Female
  Weight: 71.5 kg

DRUGS (1)
  1. POSACONAZOLE [Suspect]
     Active Substance: POSACONAZOLE
     Indication: ANTIFUNGAL PROPHYLAXIS

REACTIONS (3)
  - Hepatotoxicity [Recovered/Resolved]
  - Hepatic enzyme abnormal [Recovered/Resolved]
  - Cholecystitis acute [Unknown]
